FAERS Safety Report 13937853 (Version 2)
Quarter: 2017Q4

REPORT INFORMATION
  Report Type: Report from Study
  Country: US (occurrence: US)
  Receive Date: 20170905
  Receipt Date: 20171016
  Transmission Date: 20180320
  Serious: No
  Sender: FDA-Public Use
  Company Number: PHEH2017US027648

PATIENT
  Sex: Female

DRUGS (3)
  1. TAFINLAR [Suspect]
     Active Substance: DABRAFENIB MESYLATE
     Indication: PRODUCT USED FOR UNKNOWN INDICATION
     Dosage: 2 DF, BID
     Route: 065
  2. MEKINIST [Suspect]
     Active Substance: TRAMETINIB DIMETHYL SULFOXIDE
     Indication: PRODUCT USED FOR UNKNOWN INDICATION
     Dosage: 2 MG, QD
     Route: 065
  3. TAFINLAR [Suspect]
     Active Substance: DABRAFENIB MESYLATE
     Dosage: 4 DF, QD (2 IN THE MORNING AND 2 IN THE EVENING)
     Route: 065

REACTIONS (9)
  - Feeling abnormal [Unknown]
  - Product physical issue [Unknown]
  - Product storage error [Unknown]
  - Enlarged uvula [Unknown]
  - Dysgeusia [Unknown]
  - Choking sensation [Unknown]
  - Malaise [Unknown]
  - Regurgitation [Unknown]
  - Wrong technique in product usage process [Unknown]
